FAERS Safety Report 6879828-4 (Version None)
Quarter: 2010Q3

REPORT INFORMATION
  Report Type: 
  Country: None (occurrence: None)
  Receive Date: 20100728
  Receipt Date: 20100719
  Transmission Date: 20110219
  Serious: Yes (Other)
  Sender: FDA-Public Use
  Company Number: CA-ASTRAZENECA-2010SE33918

PATIENT
  Age: 62 Year
  Sex: Female

DRUGS (5)
  1. SYMBICORT 200 TURBUHALER [Suspect]
     Dosage: 200 MCG ONCE DAILY
     Route: 055
  2. HALLS [Concomitant]
  3. LIPITOR [Concomitant]
     Route: 048
  4. LEVOTHYROXINE SODIUM [Concomitant]
     Route: 048
  5. VASOTEC [Concomitant]
     Route: 048

REACTIONS (6)
  - BLOOD PRESSURE INCREASED [None]
  - BURNING SENSATION [None]
  - CONDITION AGGRAVATED [None]
  - COUGH [None]
  - DYSPNOEA [None]
  - RESPIRATORY TRACT IRRITATION [None]
